FAERS Safety Report 7337845-4 (Version None)
Quarter: 2011Q1

REPORT INFORMATION
  Report Type: 
  Country: None (occurrence: None)
  Receive Date: 20110308
  Receipt Date: 20110225
  Transmission Date: 20110831
  Serious: Yes (Other)
  Sender: FDA-Public Use
  Company Number: US-SANOFI-AVENTIS-2011SA012322

PATIENT
  Age: 74 Year
  Sex: Female

DRUGS (1)
  1. MULTAQ [Suspect]
     Indication: ATRIAL FIBRILLATION
     Route: 048
     Dates: start: 20110201, end: 20110223

REACTIONS (4)
  - CARDIAC ARREST [None]
  - OFF LABEL USE [None]
  - TORSADE DE POINTES [None]
  - ELECTROCARDIOGRAM QT PROLONGED [None]
